FAERS Safety Report 13721855 (Version 2)
Quarter: 2017Q3

REPORT INFORMATION
  Report Type: Spontaneous
  Country: US (occurrence: US)
  Receive Date: 20170706
  Receipt Date: 20170712
  Transmission Date: 20171127
  Serious: Yes (Other)
  Sender: FDA-Public Use
  Company Number: US-PFIZER INC-2017287669

PATIENT
  Age: 92 Year
  Sex: Male

DRUGS (1)
  1. GEMCITABINE HYDROCHLORIDE. [Suspect]
     Active Substance: GEMCITABINE HYDROCHLORIDE
     Indication: BLADDER CANCER RECURRENT
     Dosage: 2 DF, UNK (2 G/INSTILLATION)
     Route: 043

REACTIONS (3)
  - Febrile neutropenia [Recovered/Resolved]
  - Bone marrow failure [Recovered/Resolved]
  - Lymphopenia [Recovered/Resolved]
